FAERS Safety Report 21253974 (Version 2)
Quarter: 2022Q3

REPORT INFORMATION
  Report Type: Spontaneous
  Country: FR (occurrence: None)
  Receive Date: 20220825
  Receipt Date: 20220901
  Transmission Date: 20221027
  Serious: Yes (Death, Congenital Anomaly)
  Sender: FDA-Public Use
  Company Number: 2022A293185

PATIENT

DRUGS (21)
  1. OMEPRAZOLE [Suspect]
     Active Substance: OMEPRAZOLE
     Indication: Cystic fibrosis
     Dosage: 40 MG, DAILY
     Route: 065
     Dates: start: 202206, end: 20220803
  2. OMEPRAZOLE [Suspect]
     Active Substance: OMEPRAZOLE
     Indication: Cystic fibrosis
     Dosage: 40 MG, DAILY
     Route: 065
     Dates: start: 202206, end: 20220803
  3. KALYDECO [Suspect]
     Active Substance: IVACAFTOR
     Indication: Cystic fibrosis
     Dosage: 150 MG DAILY
     Route: 064
     Dates: start: 202206, end: 20220803
  4. KALYDECO [Suspect]
     Active Substance: IVACAFTOR
     Indication: Cystic fibrosis
     Dosage: 150 MG DAILY
     Route: 064
     Dates: start: 202206, end: 20220803
  5. RETINOL [Suspect]
     Active Substance: RETINOL
     Indication: Cystic fibrosis
     Dosage: 50 KIU PER WEEK
     Route: 064
     Dates: start: 202206, end: 20220803
  6. RETINOL [Suspect]
     Active Substance: RETINOL
     Indication: Cystic fibrosis
     Dosage: 50 KIU PER WEEK
     Route: 064
     Dates: start: 202206, end: 20220803
  7. COLISTIMETHATE SODIUM [Suspect]
     Active Substance: COLISTIMETHATE SODIUM
     Indication: Cystic fibrosis
     Dosage: 2,000,000 UNITS TWO TIMES A DAY
     Route: 064
     Dates: start: 202206, end: 20220803
  8. ELEXACAFTOR\IVACAFTOR\TEZACAFTOR [Suspect]
     Active Substance: ELEXACAFTOR\IVACAFTOR\TEZACAFTOR
     Indication: Cystic fibrosis
     Dosage: 75/50/100 MG, TWO TIMES A DAY
     Route: 064
     Dates: start: 202206, end: 20220803
  9. FOLIC ACID [Suspect]
     Active Substance: FOLIC ACID
     Indication: Cystic fibrosis
     Dosage: 0.4 MG, DAILY
     Route: 064
     Dates: start: 202206, end: 20220803
  10. FOLIC ACID [Suspect]
     Active Substance: FOLIC ACID
     Indication: Cystic fibrosis
     Dosage: 0.4 MG, DAILY
     Route: 064
     Dates: start: 202206, end: 20220803
  11. PANCRELIPASE [Suspect]
     Active Substance: PANCRELIPASE
     Indication: Cystic fibrosis
     Dosage: 265 KIU, DAILY
     Route: 064
     Dates: start: 202206, end: 20220803
  12. PANCRELIPASE [Suspect]
     Active Substance: PANCRELIPASE
     Indication: Cystic fibrosis
     Dosage: 265 KIU, DAILY
     Route: 064
     Dates: start: 202206, end: 20220803
  13. CHOLECALCIFEROL [Suspect]
     Active Substance: CHOLECALCIFEROL
     Indication: Cystic fibrosis
     Dosage: 100 KIU PER MONTH
     Route: 064
     Dates: start: 202206, end: 20220803
  14. CHOLECALCIFEROL [Suspect]
     Active Substance: CHOLECALCIFEROL
     Indication: Cystic fibrosis
     Dosage: 100 KIU PER MONTH
     Route: 064
     Dates: start: 202206, end: 20220803
  15. VITAMIN K [Suspect]
     Active Substance: PHYTONADIONE
     Indication: Cystic fibrosis
     Dosage: ONE VIAL, PER MONTH
     Route: 064
     Dates: start: 202206, end: 20220803
  16. VITAMIN K [Suspect]
     Active Substance: PHYTONADIONE
     Indication: Cystic fibrosis
     Dosage: ONE VIAL, PER MONTH
     Route: 064
     Dates: start: 202206, end: 20220803
  17. DOLIPRANE [Suspect]
     Active Substance: ACETAMINOPHEN
     Dosage: 1 G , THREE TIMES A DAY
     Route: 065
  18. GAVISCON [Suspect]
     Active Substance: ALUMINUM HYDROXIDE\MAGNESIUM CARBONATE
     Route: 065
  19. MINERALS\VITAMINS [Suspect]
     Active Substance: MINERALS\VITAMINS
     Route: 065
  20. ALBUTEROL [Suspect]
     Active Substance: ALBUTEROL
     Route: 065
  21. NASONEX [Suspect]
     Active Substance: MOMETASONE FUROATE
     Route: 065

REACTIONS (3)
  - Congenital absence of cranial vault [Fatal]
  - Congenital central nervous system anomaly [Fatal]
  - Foetal exposure during pregnancy [Recovered/Resolved]

NARRATIVE: CASE EVENT DATE: 20220601
